FAERS Safety Report 14356420 (Version 2)
Quarter: 2018Q2

REPORT INFORMATION
  Report Type: Spontaneous
  Country: US (occurrence: US)
  Receive Date: 20180105
  Receipt Date: 20180604
  Transmission Date: 20180711
  Serious: No
  Sender: FDA-Public Use
  Company Number: US-ALLERGAN-1722953US

PATIENT
  Sex: Male
  Weight: 88.44 kg

DRUGS (2)
  1. KYBELLA [Suspect]
     Active Substance: DEOXYCHOLIC ACID
     Indication: FAT TISSUE DECREASED
     Dosage: UNK, SINGLE
     Route: 058
     Dates: start: 20161012, end: 20161012
  2. ZYRTEC DAIICHI [Concomitant]
     Indication: MULTIPLE ALLERGIES
     Route: 065

REACTIONS (1)
  - Alopecia [Not Recovered/Not Resolved]
